FAERS Safety Report 5792301-X (Version None)
Quarter: 2008Q2

REPORT INFORMATION
  Report Type: 
  Country: None (occurrence: None)
  Receive Date: 20080626
  Receipt Date: 20080318
  Transmission Date: 20081010
  Serious: Yes (Other)
  Sender: FDA-Public Use
  Company Number: US-ASTRAZENECA-2008UW05550

PATIENT
  Age: 7 Year
  Sex: Female
  Weight: 31.9 kg

DRUGS (5)
  1. PULMICORT RESPULES [Suspect]
     Indication: ASTHMA
     Route: 055
     Dates: start: 20080201
  2. ALBUTEROL [Suspect]
  3. ZYRTEC-D 12 HOUR [Concomitant]
  4. SINGULAIR [Concomitant]
  5. DELSYM COUGH SYRUP [Concomitant]

REACTIONS (2)
  - COUGH [None]
  - PNEUMONIA [None]
